FAERS Safety Report 12887069 (Version 2)
Quarter: 2017Q4

REPORT INFORMATION
  Report Type: Spontaneous
  Country: US (occurrence: US)
  Receive Date: 20161026
  Receipt Date: 20171115
  Transmission Date: 20180320
  Serious: No
  Sender: FDA-Public Use
  Company Number: US-GLAXOSMITHKLINE-US2016157366

PATIENT
  Sex: Female

DRUGS (3)
  1. ALLI [Suspect]
     Active Substance: ORLISTAT
     Indication: WEIGHT LOSS DIET
     Dosage: 1 DF, QID
  2. ALLI [Suspect]
     Active Substance: ORLISTAT
     Indication: BLOOD CHOLESTEROL
  3. ALLI [Suspect]
     Active Substance: ORLISTAT
     Indication: CONSTIPATION

REACTIONS (1)
  - Off label use [Unknown]
